FAERS Safety Report 23318879 (Version 1)
Quarter: 2023Q4

REPORT INFORMATION
  Report Type: Spontaneous
  Country: US (occurrence: US)
  Receive Date: 20231220
  Receipt Date: 20231220
  Transmission Date: 20240109
  Serious: Yes (Other)
  Sender: FDA-Public Use
  Company Number: US-ROCHE-2932893

PATIENT
  Sex: Female
  Weight: 67.129 kg

DRUGS (16)
  1. VALGANCICLOVIR [Suspect]
     Active Substance: VALGANCICLOVIR
     Indication: Renal transplant
     Dosage: FROM SMN SIGNED 09/11/2014: NOT RECENTLY TAKING
     Route: 048
  2. CELLCEPT [Suspect]
     Active Substance: MYCOPHENOLATE MOFETIL
     Indication: Renal transplant
     Route: 048
  3. VITAMIN B12 [Concomitant]
     Active Substance: CYANOCOBALAMIN
     Dosage: 500 MCG Q DAY
  4. CEPHALEXIN [Concomitant]
     Active Substance: CEPHALEXIN
     Route: 048
  5. FLUCONAZOLE [Concomitant]
     Active Substance: FLUCONAZOLE
     Route: 048
  6. MAGNESIUM OXIDE [Concomitant]
     Active Substance: MAGNESIUM OXIDE
     Route: 048
     Dates: start: 20100930
  7. PREDNISONE [Concomitant]
     Active Substance: PREDNISONE
     Route: 048
  8. PROGRAF [Concomitant]
     Active Substance: TACROLIMUS
     Route: 048
  9. PROGRAF [Concomitant]
     Active Substance: TACROLIMUS
     Route: 048
  10. PROLIA [Concomitant]
     Active Substance: DENOSUMAB
  11. TRAZODONE [Concomitant]
     Active Substance: TRAZODONE HYDROCHLORIDE
     Dates: start: 20070607
  12. LOVASTATIN [Concomitant]
     Active Substance: LOVASTATIN
     Route: 048
  13. FISH OIL [Concomitant]
     Active Substance: FISH OIL
  14. GABAPENTIN [Concomitant]
     Active Substance: GABAPENTIN
     Route: 048
  15. PROMETHAZINE [Concomitant]
     Active Substance: PROMETHAZINE HYDROCHLORIDE
  16. TACROLIMUS [Concomitant]
     Active Substance: TACROLIMUS

REACTIONS (10)
  - Cardiomyopathy [Unknown]
  - Gastrointestinal haemorrhage [Recovered/Resolved]
  - Urinary tract infection [Recovered/Resolved]
  - Diverticulum [Recovered/Resolved]
  - Dysgeusia [Unknown]
  - Back pain [Unknown]
  - Aortic aneurysm [Unknown]
  - Hypogeusia [Unknown]
  - Cough [Unknown]
  - Pain in extremity [Unknown]
